FAERS Safety Report 11689309 (Version 1)
Quarter: 2015Q4

REPORT INFORMATION
  Report Type: Spontaneous
  Country: ES (occurrence: FR)
  Receive Date: 20151102
  Receipt Date: 20151102
  Transmission Date: 20160304
  Serious: Yes (Hospitalization, Other)
  Sender: FDA-Public Use
  Company Number: ES-009507513-2005-10-1490

PATIENT
  Age: 62 Year
  Sex: Male
  Weight: 73 kg

DRUGS (14)
  1. CISPLATIN. [Suspect]
     Active Substance: CISPLATIN
     Indication: LARGE CELL LUNG CANCER STAGE IV
     Dosage: 50 MG/M2, UNK
     Dates: start: 20050712, end: 20050712
  2. MEDROL [Suspect]
     Active Substance: METHYLPREDNISOLONE
     Dosage: 48 MG, UNK
     Route: 048
     Dates: start: 20050818, end: 20050830
  3. TAXOL [Concomitant]
     Active Substance: PACLITAXEL
     Dosage: 60 MG/M2, UNK
     Dates: start: 20051012, end: 20051012
  4. GEMZAR [Suspect]
     Active Substance: GEMCITABINE HYDROCHLORIDE
     Indication: LARGE CELL LUNG CANCER STAGE IV
     Dosage: 625 MG/M2, UNK
     Dates: start: 20050801, end: 20050801
  5. MEDROL [Suspect]
     Active Substance: METHYLPREDNISOLONE
     Indication: PRODUCT USED FOR UNKNOWN INDICATION
     Dosage: 64 MG, UNK
     Route: 048
     Dates: start: 20050713, end: 20050727
  6. TEMODAL [Suspect]
     Active Substance: TEMOZOLOMIDE
     Indication: LUNG CANCER METASTATIC
     Dosage: 75 MG/M2, QD
     Route: 048
     Dates: start: 20050701, end: 20050716
  7. CISPLATIN. [Suspect]
     Active Substance: CISPLATIN
     Dosage: 33330 ?G/M2, UNK
     Dates: start: 20050913, end: 20050913
  8. THERAPEUTIC RADIOPHARMACEUTICAL (UNSPECIFIED) [Concomitant]
     Active Substance: UNSPECIFIED INGREDIENT
     Indication: LUNG NEOPLASM MALIGNANT
     Dosage: 30 GY (DIVIDED IN 10 FRACTIONS)
     Dates: start: 20050701, end: 20050716
  9. GEMZAR [Suspect]
     Active Substance: GEMCITABINE HYDROCHLORIDE
     Dosage: 833300 ?G/M2, UNK
     Dates: start: 20050913, end: 20050913
  10. TAXOL [Concomitant]
     Active Substance: PACLITAXEL
     Dosage: 60 MG/M2, UNK
     Dates: start: 20051004, end: 20051004
  11. KARDEGIC [Concomitant]
     Active Substance: ASPIRIN LYSINE
     Dates: end: 20050715
  12. CISPLATIN. [Suspect]
     Active Substance: CISPLATIN
     Dosage: 25 MG/M2, UNK
     Dates: start: 20050801, end: 20050801
  13. MEDROL [Suspect]
     Active Substance: METHYLPREDNISOLONE
     Dosage: 32 MG, UNK
     Route: 048
     Dates: start: 20050831
  14. TAXOL [Concomitant]
     Active Substance: PACLITAXEL
     Dosage: UNK
     Dates: start: 2005

REACTIONS (9)
  - Thrombocytopenia [Recovered/Resolved]
  - Oesophagitis [Unknown]
  - Pancytopenia [Unknown]
  - Hiatus hernia [Unknown]
  - Myopathy [Unknown]
  - Ulcer [Unknown]
  - Venous thrombosis [Recovered/Resolved]
  - Oesophageal candidiasis [Unknown]
  - Chest pain [Recovered/Resolved]

NARRATIVE: CASE EVENT DATE: 200507
